FAERS Safety Report 17139835 (Version 1)
Quarter: 2019Q4

REPORT INFORMATION
  Report Type: Spontaneous
  Country: FR (occurrence: FR)
  Receive Date: 20191211
  Receipt Date: 20191211
  Transmission Date: 20200122
  Serious: Yes (Life-Threatening)
  Sender: FDA-Public Use
  Company Number: FR-ACCORD-164463

PATIENT
  Age: 78 Year
  Sex: Female
  Weight: 85 kg

DRUGS (12)
  1. OXALIPLATIN ACCORD [Suspect]
     Active Substance: OXALIPLATIN
     Indication: DIFFUSE LARGE B-CELL LYMPHOMA
     Dosage: 100 MG/MT SQ?5 MG / ML
     Route: 041
  2. DESLORATADINE. [Concomitant]
     Active Substance: DESLORATADINE
  3. SPIRONOLACTONE. [Concomitant]
     Active Substance: SPIRONOLACTONE
  4. BACTRIM [Concomitant]
     Active Substance: SULFAMETHOXAZOLE\TRIMETHOPRIM
     Dosage: TABLET
  5. GEMCITABINE SANDOZ [Suspect]
     Active Substance: GEMCITABINE\GEMCITABINE HYDROCHLORIDE
     Indication: DIFFUSE LARGE B-CELL LYMPHOMA
     Dosage: 40 MG / ML
     Route: 041
  6. TRUXIMA [Suspect]
     Active Substance: RITUXIMAB-ABBS
     Indication: DIFFUSE LARGE B-CELL LYMPHOMA
     Dosage: 375 MG/MT SQ?500 MG
     Route: 041
  7. SIMVASTATIN. [Concomitant]
     Active Substance: SIMVASTATIN
  8. CORTANCYL [Concomitant]
     Active Substance: PREDNISONE
  9. BISOPROLOL [Concomitant]
     Active Substance: BISOPROLOL
  10. DAFALGAN [Concomitant]
     Active Substance: ACETAMINOPHEN
  11. VALACICLOVIR [Concomitant]
     Active Substance: VALACYCLOVIR HYDROCHLORIDE
  12. TRANXENE [Concomitant]
     Active Substance: CLORAZEPATE DIPOTASSIUM

REACTIONS (1)
  - Capillary leak syndrome [Recovering/Resolving]

NARRATIVE: CASE EVENT DATE: 20191003
